FAERS Safety Report 6337129-7 (Version None)
Quarter: 2009Q3

REPORT INFORMATION
  Report Type: 
  Country: None (occurrence: None)
  Receive Date: 20090831
  Receipt Date: 20090812
  Transmission Date: 20100115
  Serious: Yes (Hospitalization)
  Sender: FDA-Public Use
  Company Number: DSA_40605_2009

PATIENT
  Age: 72 Year
  Sex: Female

DRUGS (7)
  1. NITOMAN TAB [Suspect]
     Indication: DYSKINESIA
     Dosage: (25 MG QID ORAL), (12.5 MG QID ORAL)
     Route: 048
     Dates: start: 20081001, end: 20090614
  2. NITOMAN TAB [Suspect]
     Indication: DYSKINESIA
     Dosage: (25 MG QID ORAL), (12.5 MG QID ORAL)
     Route: 048
     Dates: start: 20090615, end: 20090625
  3. CALCIUM CARBONATE [Concomitant]
  4. DOXEPIN HCL [Concomitant]
  5. BETAHISTINE [Concomitant]
  6. XIMOVAN [Concomitant]
  7. MACROGOL [Concomitant]

REACTIONS (13)
  - ACTIVATED PARTIAL THROMBOPLASTIN TIME SHORTENED [None]
  - ASPARTATE AMINOTRANSFERASE INCREASED [None]
  - BALANCE DISORDER [None]
  - BLOOD BILIRUBIN INCREASED [None]
  - BLOOD CALCIUM DECREASED [None]
  - BLOOD POTASSIUM DECREASED [None]
  - BLOOD UREA DECREASED [None]
  - C-REACTIVE PROTEIN INCREASED [None]
  - CONFUSIONAL STATE [None]
  - HEART RATE INCREASED [None]
  - MUSCLE RIGIDITY [None]
  - PARKINSONISM [None]
  - RESTLESSNESS [None]
